FAERS Safety Report 4988407-5 (Version None)
Quarter: 2006Q2

REPORT INFORMATION
  Report Type: 
  Country: None (occurrence: None)
  Receive Date: 20060502
  Receipt Date: 20060420
  Transmission Date: 20061013
  Serious: Yes (Other)
  Sender: FDA-Public Use
  Company Number: ES-AVENTIS-200614479GDDC

PATIENT
  Age: 44 Year
  Sex: Male

DRUGS (1)
  1. LANTUS [Suspect]
     Indication: DIABETES MELLITUS
     Dosage: DOSE: UNK

REACTIONS (3)
  - HYPOGLYCAEMIC COMA [None]
  - HYPOTENSION [None]
  - LOSS OF CONSCIOUSNESS [None]
